FAERS Safety Report 4748738-0 (Version None)
Quarter: 2005Q3

REPORT INFORMATION
  Report Type: 
  Country: None (occurrence: None)
  Receive Date: 20050819
  Receipt Date: 20050418
  Transmission Date: 20060218
  Serious: Yes (Life-Threatening, Hospitalization)
  Sender: FDA-Public Use
  Company Number: 2005PK00669

PATIENT
  Age: 16 Year
  Sex: Male
  Weight: 70 kg

DRUGS (19)
  1. DISOPRIVAN 1% [Suspect]
     Indication: ANAESTHESIA
     Route: 040
     Dates: start: 20050415, end: 20050415
  2. DISOPRIVAN 1% [Suspect]
     Route: 040
     Dates: start: 20050415, end: 20050415
  3. FENTANYL [Suspect]
     Indication: ANAESTHESIA
     Route: 040
     Dates: start: 20050415, end: 20050415
  4. FENTANYL [Suspect]
     Route: 040
     Dates: start: 20050415, end: 20050415
  5. MIDAZOLAM HCL [Concomitant]
     Indication: ANAESTHESIA
     Route: 048
     Dates: start: 20050415, end: 20050415
  6. NATRIUMCITRAT [Concomitant]
     Route: 042
     Dates: start: 20050415
  7. RINGER-INFUSION [Concomitant]
     Route: 042
     Dates: start: 20050415
  8. RINGER-INFUSION [Concomitant]
     Route: 042
     Dates: start: 20050415
  9. RINGER-INFUSION [Concomitant]
     Route: 042
     Dates: start: 20050415
  10. RANITIDINE [Concomitant]
     Route: 040
     Dates: start: 20050415
  11. VECURONIUM INRESA [Concomitant]
     Route: 040
     Dates: start: 20050415, end: 20050415
  12. DIPYRONE TAB [Concomitant]
     Route: 042
     Dates: start: 20050415
  13. NEOSTIGMIN [Concomitant]
     Route: 040
     Dates: start: 20050415, end: 20050415
  14. CATAPRESAN [Concomitant]
     Route: 040
     Dates: start: 20050415, end: 20050415
  15. NARCAN [Concomitant]
     Route: 040
     Dates: start: 20050415, end: 20050415
  16. PERFALGAN [Concomitant]
     Route: 042
     Dates: start: 20050415
  17. JONOSTERIL NA 100 [Concomitant]
     Route: 042
     Dates: start: 20050415
  18. JONOSTERIL NA 100 [Concomitant]
     Route: 042
     Dates: start: 20050415
  19. OXYGEN [Concomitant]
     Dates: start: 20050415, end: 20050415

REACTIONS (4)
  - ALVEOLITIS ALLERGIC [None]
  - BAROTRAUMA [None]
  - HAEMOPTYSIS [None]
  - PULMONARY OEDEMA [None]
